FAERS Safety Report 17879708 (Version 1)
Quarter: 2020Q2

REPORT INFORMATION
  Report Type: Spontaneous
  Country: US (occurrence: US)
  Receive Date: 20200609
  Receipt Date: 20200609
  Transmission Date: 20200714
  Serious: Yes (Other)
  Sender: FDA-Public Use
  Company Number: None

PATIENT
  Age: 25 Year
  Sex: Female
  Weight: 60.75 kg

DRUGS (9)
  1. WELLBUTRIN XL [Concomitant]
     Active Substance: BUPROPION HYDROCHLORIDE
     Dates: start: 20200318
  2. PROTONIX [Concomitant]
     Active Substance: PANTOPRAZOLE SODIUM
     Dates: start: 20181110
  3. CETIRIZINE HCL 24H [Suspect]
     Active Substance: CETIRIZINE HYDROCHLORIDE
     Indication: RHINITIS ALLERGIC
     Route: 048
     Dates: start: 20200101, end: 20200606
  4. MINOCYCLINE [Concomitant]
     Active Substance: MINOCYCLINE HYDROCHLORIDE
     Dates: start: 20100608
  5. FISH OIL [Concomitant]
     Active Substance: FISH OIL
     Dates: start: 20190611
  6. ONE-A-DAY WOMEN^S MULTIVITAMIN [Concomitant]
     Dates: start: 20200414
  7. ZOLOFT [Concomitant]
     Active Substance: SERTRALINE HYDROCHLORIDE
     Dates: start: 20200318
  8. LO ESTRIN OCP [Concomitant]
     Dates: start: 20171014
  9. VIT D 5000U [Concomitant]
     Dates: start: 20200608

REACTIONS (5)
  - Withdrawal syndrome [None]
  - Pruritus [None]
  - Erythema [None]
  - Somnolence [None]
  - Skin abrasion [None]

NARRATIVE: CASE EVENT DATE: 20200608
